APPROVED DRUG PRODUCT: PYRIDOSTIGMINE BROMIDE
Active Ingredient: PYRIDOSTIGMINE BROMIDE
Strength: 30MG
Dosage Form/Route: TABLET;ORAL
Application: A040502 | Product #002 | TE Code: AB
Applicant: IMPAX LABORATORIES INC
Approved: Jun 28, 2022 | RLD: No | RS: No | Type: RX